FAERS Safety Report 16789615 (Version 1)
Quarter: 2019Q3

REPORT INFORMATION
  Report Type: Spontaneous
  Country: ES (occurrence: ES)
  Receive Date: 20190910
  Receipt Date: 20190910
  Transmission Date: 20191005
  Serious: Yes (Hospitalization)
  Sender: FDA-Public Use
  Company Number: ES-TEVA-2019-ES-1103730

PATIENT
  Age: 84 Year
  Sex: Male

DRUGS (6)
  1. AMOCICILINA/CLAVULANICO 875/125 MG COMP [Suspect]
     Active Substance: AMOXICILLIN\CLAVULANIC ACID
     Indication: LIMB INJURY
     Dosage: 1 COMP/8H
     Route: 048
     Dates: start: 20190730, end: 20190806
  2. PLAVIX 75 MG COMPRIMIDOS RECUBIERTOS CON PELICULA [Concomitant]
  3. SPIOLTO RESPIMAT 2,5 MICROGRAMOS / 2,5 MICROGRAMOS SOLUCION PARA INHAL [Concomitant]
  4. VESOMNI [Concomitant]
     Active Substance: SOLIFENACIN\TAMSULOSIN
  5. KEPPRA 500 MG COMPRIMIDOS RECUBIERTOS CON PELICULA [Concomitant]
  6. FUROSEMIDA (1615A) [Concomitant]
     Active Substance: FUROSEMIDE

REACTIONS (1)
  - Hepatitis cholestatic [Recovering/Resolving]

NARRATIVE: CASE EVENT DATE: 20190810
